FAERS Safety Report 9300855 (Version 1)
Quarter: 2013Q2

REPORT INFORMATION
  Report Type: Spontaneous
  Country: US (occurrence: None)
  Receive Date: 20130520
  Receipt Date: 20130520
  Transmission Date: 20140414
  Serious: Yes (Other)
  Sender: FDA-Public Use
  Company Number: None

PATIENT
  Age: 62 Year
  Sex: Female
  Weight: 68.04 kg

DRUGS (2)
  1. PICATO [Suspect]
     Indication: ACTINIC KERATOSIS
     Dosage: 1 TUBE 1/DAY TOP
     Route: 061
     Dates: start: 20130517, end: 20130517
  2. PICATO [Concomitant]

REACTIONS (6)
  - Application site pain [None]
  - Application site vesicles [None]
  - Application site swelling [None]
  - Application site pain [None]
  - Headache [None]
  - Dizziness [None]
